FAERS Safety Report 4314289-0 (Version None)
Quarter: 2004Q1

REPORT INFORMATION
  Report Type: 
  Country: None (occurrence: None)
  Receive Date: 20040309
  Receipt Date: 20040227
  Transmission Date: 20041129
  Serious: Yes (Life-Threatening)
  Sender: FDA-Public Use
  Company Number: PHRM2004FR01008

PATIENT
  Age: 13 Year
  Sex: Female

DRUGS (2)
  1. AREDIA [Suspect]
     Indication: OSTEOPOROSIS PROPHYLAXIS
     Dates: start: 20040216
  2. CORTICOSTEROID NOS [Concomitant]
     Indication: ARTHRITIS
     Dates: start: 19990101

REACTIONS (13)
  - AREFLEXIA [None]
  - BRAIN OEDEMA [None]
  - C-REACTIVE PROTEIN INCREASED [None]
  - COMA [None]
  - HYPERHIDROSIS [None]
  - HYPOCALCAEMIA [None]
  - HYPOKALAEMIA [None]
  - HYPONATRAEMIA [None]
  - HYPOTENSION [None]
  - INFLAMMATION [None]
  - LEUKOCYTOSIS [None]
  - MUSCLE RIGIDITY [None]
  - PHOTOPHOBIA [None]
